FAERS Safety Report 21614643 (Version 3)
Quarter: 2023Q1

REPORT INFORMATION
  Report Type: Spontaneous
  Country: DE (occurrence: DE)
  Receive Date: 20221118
  Receipt Date: 20230302
  Transmission Date: 20230418
  Serious: Yes (Hospitalization)
  Sender: FDA-Public Use
  Company Number: DE-ADRED-08410-01

PATIENT
  Age: 77 Year
  Sex: Male
  Weight: 80 kg

DRUGS (38)
  1. TORSEMIDE [Interacting]
     Active Substance: TORSEMIDE
     Indication: Product used for unknown indication
     Dosage: 10 MILLIGRAM, QD (10 MG, 1-0-0-0 TABLET)
     Route: 048
  2. TORSEMIDE [Interacting]
     Active Substance: TORSEMIDE
     Dosage: 10 MILLIGRAM, QD (10 MG, 1-0-0-0 TABLET)
     Route: 048
  3. TORSEMIDE [Interacting]
     Active Substance: TORSEMIDE
     Dosage: 10 MILLIGRAM, QD (10 MG, 1-0-0-0 TABLET)
     Route: 048
  4. SITAGLIPTIN [Interacting]
     Active Substance: SITAGLIPTIN
     Indication: Product used for unknown indication
     Dosage: 50 MILLIGRAM (50 MG, 0.5-0-0-0 TABLET)
     Route: 048
  5. SITAGLIPTIN [Interacting]
     Active Substance: SITAGLIPTIN
     Dosage: 50 MILLIGRAM (50 MG, 0.5-0-0-0 TABLET)
     Route: 048
  6. SITAGLIPTIN [Interacting]
     Active Substance: SITAGLIPTIN
     Dosage: 50 MILLIGRAM (50 MG, 0.5-0-0-0 TABLET)
     Route: 048
  7. CANDESARTAN [Interacting]
     Active Substance: CANDESARTAN
     Indication: Product used for unknown indication
     Dosage: 16 MILLIGRAM (16 MG, 0.5-0-0.5-0 TABLET)
     Route: 048
  8. CARVEDILOL [Interacting]
     Active Substance: CARVEDILOL
     Indication: Product used for unknown indication
     Dosage: 6.25 MILLIGRAM, BID (6.25 MG, 1-0-1-0 TABLET)
     Route: 048
  9. CARVEDILOL [Interacting]
     Active Substance: CARVEDILOL
     Dosage: 6.25 MILLIGRAM, BID (6.25 MG, 1-0-1-0 TABLET)
     Route: 048
  10. CARVEDILOL [Interacting]
     Active Substance: CARVEDILOL
     Dosage: 6.25 MILLIGRAM, BID (6.25 MG, 1-0-1-0 TABLET)
     Route: 048
  11. CARVEDILOL [Interacting]
     Active Substance: CARVEDILOL
     Dosage: 12.5 MILLIGRAM, BID
     Route: 048
  12. ATORVASTATIN [Concomitant]
     Active Substance: ATORVASTATIN
     Dosage: 40 MILLIGRAM, QD (40 MG, 0-0-1-0 TABLETS)
     Route: 048
  13. ATORVASTATIN [Concomitant]
     Active Substance: ATORVASTATIN
     Dosage: 40 MILLIGRAM, QD (40 MG, 0-0-1-0 TABLETS)
     Route: 048
  14. ATORVASTATIN [Concomitant]
     Active Substance: ATORVASTATIN
     Dosage: 40 MILLIGRAM, QD (40 MG, 0-0-1-0 TABLETS)
     Route: 048
  15. CYANOCOBALAMIN [Concomitant]
     Active Substance: CYANOCOBALAMIN
     Dosage: 1 MILLIGRAM, QD (1 MG, 1-0-0-0 COATED TABLET)
     Route: 048
  16. CYANOCOBALAMIN [Concomitant]
     Active Substance: CYANOCOBALAMIN
     Dosage: 1 MILLIGRAM, QD (1 MG, 1-0-0-0 COATED TABLET)
     Route: 048
  17. CYANOCOBALAMIN [Concomitant]
     Active Substance: CYANOCOBALAMIN
     Dosage: 1 MILLIGRAM, QD (1 MG, 1-0-0-0 COATED TABLET)
     Route: 048
  18. RISPERIDONE [Concomitant]
     Active Substance: RISPERIDONE
     Dosage: 0.5 MG, 0-0-2-0 TABLET
     Route: 048
  19. RISPERIDONE [Concomitant]
     Active Substance: RISPERIDONE
     Dosage: 0.5 MG, 0-0-2-0 TABLET
     Route: 048
  20. RISPERIDONE [Concomitant]
     Active Substance: RISPERIDONE
     Dosage: 0.5 MG, 0-0-2-0 TABLET
     Route: 048
  21. ASPIRIN [Concomitant]
     Active Substance: ASPIRIN
     Dosage: 100 MILLIGRAM, QD (100 MG, 0-1-0-0 TABLET)
     Route: 048
  22. ASPIRIN [Concomitant]
     Active Substance: ASPIRIN
     Dosage: 100 MILLIGRAM, QD (100 MG, 0-1-0-0 TABLET)
     Route: 048
  23. ASPIRIN [Concomitant]
     Active Substance: ASPIRIN
     Dosage: 100 MILLIGRAM, QD (100 MG, 0-1-0-0 TABLET)
     Route: 048
  24. PANTOPRAZOLE SODIUM [Concomitant]
     Active Substance: PANTOPRAZOLE SODIUM
     Dosage: 40 MG, 1-0-0-0 TABLET
     Route: 048
  25. PANTOPRAZOLE SODIUM [Concomitant]
     Active Substance: PANTOPRAZOLE SODIUM
     Dosage: 40 MG, 1-0-0-0 TABLET
     Route: 048
  26. PANTOPRAZOLE SODIUM [Concomitant]
     Active Substance: PANTOPRAZOLE SODIUM
     Dosage: 40 MG, 1-0-0-0 TABLET
     Route: 048
  27. EZETIMIBE [Concomitant]
     Active Substance: EZETIMIBE
     Dosage: 10 MILLIGRAM, QD (10 MG, 0-0-1-0 TABLET)
     Route: 048
  28. EZETIMIBE [Concomitant]
     Active Substance: EZETIMIBE
     Dosage: 10 MILLIGRAM, QD (10 MG, 0-0-1-0 TABLET)
     Route: 048
  29. EZETIMIBE [Concomitant]
     Active Substance: EZETIMIBE
     Dosage: 10 MILLIGRAM, QD (10 MG, 0-0-1-0 TABLET)
     Route: 048
  30. PIPAMPERONE HYDROCHLORIDE [Concomitant]
     Active Substance: PIPAMPERONE HYDROCHLORIDE
     Dosage: 40 MG, 0-0.5-1-0 TABLET
     Route: 048
  31. PIPAMPERONE HYDROCHLORIDE [Concomitant]
     Active Substance: PIPAMPERONE HYDROCHLORIDE
     Dosage: 40 MG, 0-0.5-1-0 TABLET
     Route: 048
  32. PIPAMPERONE HYDROCHLORIDE [Concomitant]
     Active Substance: PIPAMPERONE HYDROCHLORIDE
     Dosage: 40 MG, 0-0.5-1-0 TABLET
     Route: 048
  33. AMLODIPINE BESYLATE [Concomitant]
     Active Substance: AMLODIPINE BESYLATE
     Dosage: 5 MILLIGRAM (5 MG, NK TABLETS)
     Route: 048
  34. AMLODIPINE BESYLATE [Concomitant]
     Active Substance: AMLODIPINE BESYLATE
     Dosage: 5 MILLIGRAM (5 MG, NK TABLETS)
     Route: 048
  35. AMLODIPINE BESYLATE [Concomitant]
     Active Substance: AMLODIPINE BESYLATE
     Dosage: 5 MILLIGRAM (5 MG, NK TABLETS)
     Route: 048
  36. FERRO-SANOL DUODENAL [Concomitant]
     Active Substance: FERROUS GLYCINE SULFATE
     Dosage: QD (0-1-0-0, CAPSULE)
     Route: 048
  37. FERRO-SANOL DUODENAL [Concomitant]
     Active Substance: FERROUS GLYCINE SULFATE
     Dosage: QD (0-1-0-0, CAPSULE)
     Route: 048
  38. FERRO-SANOL DUODENAL [Concomitant]
     Active Substance: FERROUS GLYCINE SULFATE
     Dosage: QD (0-1-0-0, CAPSULE)
     Route: 048

REACTIONS (4)
  - General physical health deterioration [Recovering/Resolving]
  - Dizziness [Recovering/Resolving]
  - Product monitoring error [Unknown]
  - Labelled drug-drug interaction medication error [Unknown]
